FAERS Safety Report 7426448-9 (Version None)
Quarter: 2011Q2

REPORT INFORMATION
  Report Type: 
  Country: None (occurrence: None)
  Receive Date: 20110413
  Receipt Date: 20110405
  Transmission Date: 20111010
  Serious: Yes (Other)
  Sender: FDA-Public Use
  Company Number: 20109802

PATIENT
  Sex: Female

DRUGS (1)
  1. LIORESAL [Suspect]
     Indication: MUSCLE SPASTICITY
     Dosage: MCG, DAILY, INTRATHECAL
     Route: 037

REACTIONS (19)
  - BLISTER [None]
  - HEADACHE [None]
  - BLOOD PRESSURE INCREASED [None]
  - BURNING SENSATION [None]
  - COMA [None]
  - MEDICAL DEVICE COMPLICATION [None]
  - PELVIC PAIN [None]
  - MUSCLE SPASTICITY [None]
  - CONDITION AGGRAVATED [None]
  - DRUG EFFECT DECREASED [None]
  - UNDERDOSE [None]
  - PYREXIA [None]
  - INCORRECT DOSE ADMINISTERED [None]
  - CHILLS [None]
  - DRUG WITHDRAWAL SYNDROME [None]
  - VOMITING [None]
  - TREMOR [None]
  - DYSPNOEA [None]
  - INFLUENZA LIKE ILLNESS [None]
